FAERS Safety Report 15327089 (Version 1)
Quarter: 2018Q3

REPORT INFORMATION
  Report Type: Spontaneous
  Country: US (occurrence: US)
  Receive Date: 20180823
  Receipt Date: 20180823
  Transmission Date: 20181010
  Serious: Yes (Other)
  Sender: FDA-Public Use
  Company Number: None

PATIENT
  Age: 18 Year
  Sex: Male
  Weight: 69.75 kg

DRUGS (2)
  1. NOCTIVA [Suspect]
     Active Substance: DESMOPRESSIN ACETATE
     Indication: NOCTURIA
     Route: 045
     Dates: start: 20180803, end: 20180808
  2. CLARITIN [Concomitant]
     Active Substance: LORATADINE
     Dates: start: 20180808, end: 20180808

REACTIONS (6)
  - Tonic clonic movements [None]
  - Confusional state [None]
  - Nausea [None]
  - Vomiting [None]
  - Breath sounds abnormal [None]
  - Headache [None]

NARRATIVE: CASE EVENT DATE: 20180809
